FAERS Safety Report 10414078 (Version 2)
Quarter: 2014Q3

REPORT INFORMATION
  Report Type: Spontaneous
  Country: US (occurrence: US)
  Receive Date: 20140827
  Receipt Date: 20140827
  Transmission Date: 20150326
  Serious: No
  Sender: FDA-Public Use
  Company Number: US-ASTRAZENECA-2013SE88981

PATIENT
  Age: 71 Year
  Sex: Female
  Weight: 43.1 kg

DRUGS (17)
  1. NASONEX [Concomitant]
     Active Substance: MOMETASONE FUROATE
     Indication: MULTIPLE ALLERGIES
     Dosage: TWICE IN EACH NOSTRIL, DAILY
     Route: 045
  2. ALBUTEROL SULPHATE/ IPRATROPIUM [Concomitant]
     Dosage: 2.5 MG/ 0.5 MG, QID
  3. MSM [Concomitant]
     Active Substance: DIMETHYL SULFONE
     Dosage: 1000 MG
  4. MULTIVITAMIN [Concomitant]
     Active Substance: VITAMINS
     Route: 048
  5. SYMBICORT [Suspect]
     Active Substance: BUDESONIDE\FORMOTEROL FUMARATE DIHYDRATE
     Indication: CHRONIC OBSTRUCTIVE PULMONARY DISEASE
     Dosage: 160/4.5, 2 PUFFS BID
     Route: 055
     Dates: start: 20130418
  6. METFORMIN HCL [Concomitant]
     Active Substance: METFORMIN HYDROCHLORIDE
     Indication: GLUCOSE TOLERANCE IMPAIRED
     Route: 048
  7. COREG [Concomitant]
     Active Substance: CARVEDILOL
     Route: 048
  8. FORADIL [Concomitant]
     Active Substance: FORMOTEROL FUMARATE
     Dosage: 12 UG, CAP W. DEV 1 PUFFS, Q12H
  9. CHLORPHENIRAMINE MALEATE. [Concomitant]
     Active Substance: CHLORPHENIRAMINE MALEATE
     Route: 048
  10. VYTORIN [Concomitant]
     Active Substance: EZETIMIBE\SIMVASTATIN
     Dosage: 10 MG/40 MG, 1 TABLET, HS
     Route: 048
  11. ASPIRIN. [Concomitant]
     Active Substance: ASPIRIN
     Route: 048
  12. FISH OIL [Concomitant]
     Active Substance: FISH OIL
     Route: 048
  13. NITROSTAT [Concomitant]
     Active Substance: NITROGLYCERIN
     Dosage: 0.4 MG, USE AS DIRECTED
     Route: 060
  14. VITAMIN D3 [Concomitant]
     Active Substance: CHOLECALCIFEROL
     Dosage: 2000 UNITS, 1 CAPSULE DAILY
     Route: 048
  15. ALENDRONATE SODIUM. [Concomitant]
     Active Substance: ALENDRONATE SODIUM
     Route: 048
  16. ESTRACE [Concomitant]
     Active Substance: ESTRADIOL
     Dosage: 1 APPLICATION, UNKNOWN FREQUENCY
     Route: 061
  17. VISION FORMULA [Concomitant]

REACTIONS (9)
  - Bronchitis chronic [Unknown]
  - Eye disorder [Not Recovered/Not Resolved]
  - Rhinitis allergic [Unknown]
  - Conjunctivitis allergic [Unknown]
  - Eye pain [Not Recovered/Not Resolved]
  - Hyperlipidaemia [Unknown]
  - Eyelid oedema [Not Recovered/Not Resolved]
  - Dry eye [Not Recovered/Not Resolved]
  - Emphysema [Unknown]
